FAERS Safety Report 6943673-1 (Version None)
Quarter: 2010Q3

REPORT INFORMATION
  Report Type: 
  Country: None (occurrence: None)
  Receive Date: 20100826
  Receipt Date: 20100816
  Transmission Date: 20110219
  Serious: Yes (Other)
  Sender: FDA-Public Use
  Company Number: RU-GENENTECH-305315

PATIENT
  Sex: Female
  Weight: 65 kg

DRUGS (7)
  1. MABTHERA [Suspect]
     Indication: RHEUMATOID ARTHRITIS
     Dosage: 1000 MG, UNK
     Route: 042
     Dates: start: 20090501
  2. MABTHERA [Suspect]
     Dosage: UNK
     Route: 042
     Dates: start: 20091101
  3. MABTHERA [Suspect]
     Dosage: UNK
     Route: 042
     Dates: start: 20100501
  4. METHOTREXATE [Concomitant]
     Indication: RHEUMATOID ARTHRITIS
     Dosage: 15 MG, 1/WEEK
     Dates: start: 20060101
  5. METHYLPREDNISOLONE [Concomitant]
     Indication: RHEUMATOID ARTHRITIS
     Dosage: 6 MG, QD
     Dates: start: 20060101
  6. NIMESULIDE [Concomitant]
     Indication: PRODUCT USED FOR UNKNOWN INDICATION
     Dosage: 100 MG, QD
  7. OMEPRAZOLE [Concomitant]
     Indication: PRODUCT USED FOR UNKNOWN INDICATION
     Dosage: 40 MG, QD

REACTIONS (2)
  - RESPIRATORY TRACT INFECTION VIRAL [None]
  - TUBERCULOSIS [None]
